FAERS Safety Report 5798138-X (Version None)
Quarter: 2008Q2

REPORT INFORMATION
  Report Type: 
  Country: None (occurrence: None)
  Receive Date: 20080630
  Receipt Date: 20080612
  Transmission Date: 20081010
  Serious: Yes (Hospitalization)
  Sender: FDA-Public Use
  Company Number: 19600

PATIENT
  Age: 55 Year
  Sex: Male

DRUGS (6)
  1. NIPENT [Suspect]
     Indication: LEUKAEMIA
  2. VALACYCLOVIR HCL [Concomitant]
  3. TRIFLUCAN [Concomitant]
  4. ZOPHREN [Concomitant]
  5. STABLON [Concomitant]
  6. BACTRIM [Concomitant]

REACTIONS (1)
  - ATYPICAL MYCOBACTERIAL INFECTION [None]
